FAERS Safety Report 12094949 (Version 1)
Quarter: 2016Q1

REPORT INFORMATION
  Report Type: Spontaneous
  Country: DE (occurrence: DE)
  Receive Date: 20160219
  Receipt Date: 20160219
  Transmission Date: 20160526
  Serious: No
  Sender: FDA-Public Use
  Company Number: DE-PERNIX THERAPEUTICS-2015PT000161

PATIENT

DRUGS (2)
  1. TANTUM                             /00052302/ [Concomitant]
     Dosage: UNK
     Dates: start: 20150108, end: 20150116
  2. KEIMAX [Suspect]
     Active Substance: CEFTIBUTEN
     Indication: RHINORRHOEA
     Dosage: UNK
     Route: 048

REACTIONS (3)
  - Oral fungal infection [Recovered/Resolved]
  - Vulvovaginal mycotic infection [Recovered/Resolved]
  - Fungal infection [Recovered/Resolved]
